FAERS Safety Report 7740958-6 (Version None)
Quarter: 2011Q3

REPORT INFORMATION
  Report Type: 
  Country: None (occurrence: None)
  Receive Date: 20110909
  Receipt Date: 20110905
  Transmission Date: 20111222
  Serious: Yes (Death, Hospitalization, Other)
  Sender: FDA-Public Use
  Company Number: PHHY2011ES79428

PATIENT
  Age: 53 Year
  Sex: Male

DRUGS (2)
  1. CYCLOSPORINE [Suspect]
     Indication: RENAL TRANSPLANT
  2. MEROPENEM [Concomitant]
     Dosage: 500 MG, BID

REACTIONS (24)
  - DIARRHOEA [None]
  - BLOOD LACTATE DEHYDROGENASE INCREASED [None]
  - ASTHENIA [None]
  - BLOOD TRIGLYCERIDES INCREASED [None]
  - HISTIOCYTOSIS HAEMATOPHAGIC [None]
  - INTESTINAL DILATATION [None]
  - NEUROLOGICAL DECOMPENSATION [None]
  - THROMBOCYTOPENIA [None]
  - OESOPHAGEAL INFECTION [None]
  - MULTI-ORGAN FAILURE [None]
  - DECREASED APPETITE [None]
  - URINE OUTPUT DECREASED [None]
  - HEPATOSPLENOMEGALY [None]
  - RENAL IMPAIRMENT [None]
  - CYTOMEGALOVIRUS GASTROINTESTINAL INFECTION [None]
  - PYREXIA [None]
  - CHILLS [None]
  - GENERAL PHYSICAL HEALTH DETERIORATION [None]
  - ABDOMINAL PAIN [None]
  - STAPHYLOCOCCAL INFECTION [None]
  - POSTOPERATIVE ILEUS [None]
  - MELAENA [None]
  - HEPATIC FUNCTION ABNORMAL [None]
  - ANAEMIA [None]
